FAERS Safety Report 5734469-7 (Version None)
Quarter: 2008Q2

REPORT INFORMATION
  Report Type: 
  Country: None (occurrence: None)
  Receive Date: 20080512
  Receipt Date: 20080430
  Transmission Date: 20081010
  Serious: Yes (Hospitalization)
  Sender: FDA-Public Use
  Company Number: JP-NOVOPROD-274782

PATIENT
  Age: 22 Year
  Sex: Male
  Weight: 52 kg

DRUGS (2)
  1. LEVEMIR [Suspect]
     Indication: TYPE 1 DIABETES MELLITUS
     Dosage: 28 IU, QD
     Route: 058
     Dates: start: 20080307
  2. HUMALOG [Concomitant]
     Indication: TYPE 1 DIABETES MELLITUS
     Dosage: 21 IU, QD
     Route: 058

REACTIONS (6)
  - DIABETIC KETOACIDOSIS [None]
  - DIARRHOEA [None]
  - HAEMATEMESIS [None]
  - INFECTION [None]
  - MALAISE [None]
  - PYREXIA [None]
